FAERS Safety Report 11622705 (Version 1)
Quarter: 2015Q4

REPORT INFORMATION
  Report Type: Spontaneous
  Country: US (occurrence: US)
  Receive Date: 20151013
  Receipt Date: 20151013
  Transmission Date: 20160304
  Serious: No
  Sender: FDA-Public Use
  Company Number: US-JNJFOC-20150907381

PATIENT
  Age: 3 Year
  Sex: Male
  Weight: 10.89 kg

DRUGS (1)
  1. INFANTS TYLENOL [Suspect]
     Active Substance: ACETAMINOPHEN
     Indication: SEASONAL ALLERGY
     Route: 048
     Dates: start: 20150906, end: 20150908

REACTIONS (2)
  - Product use issue [Unknown]
  - Expired product administered [Unknown]
